FAERS Safety Report 20278870 (Version 1)
Quarter: 2022Q1

REPORT INFORMATION
  Report Type: Spontaneous
  Country: US (occurrence: US)
  Receive Date: 20220103
  Receipt Date: 20220103
  Transmission Date: 20220423
  Serious: No
  Sender: FDA-Public Use
  Company Number: US-SANOFI-00908863

PATIENT
  Age: 92 Year
  Sex: Female

DRUGS (1)
  1. ALLEGRA [Suspect]
     Active Substance: FEXOFENADINE HYDROCHLORIDE
     Indication: Hypersensitivity
     Dosage: UNK DF, 1X
     Dates: start: 20211221

REACTIONS (3)
  - Glossodynia [Unknown]
  - Tongue discolouration [Unknown]
  - Dry mouth [Unknown]
